FAERS Safety Report 5753019-2 (Version None)
Quarter: 2008Q2

REPORT INFORMATION
  Report Type: 
  Country: None (occurrence: None)
  Receive Date: 20080523
  Receipt Date: 20080512
  Transmission Date: 20081010
  Serious: Yes (Other)
  Sender: FDA-Public Use
  Company Number: 1-16142509/MED-08099

PATIENT
  Age: 5 Year
  Sex: Male

DRUGS (1)
  1. BACTRIM [Suspect]
     Indication: ACUTE LYMPHOCYTIC LEUKAEMIA
     Dosage: THREE TIMES PER WEEK, ORAL
     Route: 048

REACTIONS (1)
  - LINEAR IGA DISEASE [None]
